FAERS Safety Report 9363662 (Version 1)
Quarter: 2013Q2

REPORT INFORMATION
  Report Type: Spontaneous
  Country: DK (occurrence: None)
  Receive Date: 20130618
  Receipt Date: 20130618
  Transmission Date: 20140414
  Serious: Yes (Other)
  Sender: FDA-Public Use
  Company Number: FK201301942

PATIENT
  Age: 55 Year
  Sex: Female

DRUGS (12)
  1. OXALIPLATIN [Suspect]
     Indication: METASTASES TO LIVER
  2. HERCEPTIN [Suspect]
     Indication: BREAST CANCER RECURRENT
     Dates: start: 2011
  3. HERCEPTIN [Suspect]
     Indication: METASTASES TO LIVER
     Dates: start: 2011
  4. HERCEPTIN [Suspect]
     Dates: start: 2011
  5. HERCEPTIN [Suspect]
     Dates: start: 2011
  6. XELODA [Suspect]
     Indication: METASTASES TO LIVER
  7. NAVELBINE [Suspect]
     Indication: BREAST CANCER RECURRENT
     Dates: start: 2011
  8. NAVELBINE [Suspect]
     Indication: METASTASES TO LIVER
     Dates: start: 2011
  9. NAVELBINE [Suspect]
     Indication: METASTASES TO BONE
     Dates: start: 2011
  10. ZOMETA [Suspect]
     Indication: BREAST CANCER RECURRENT
     Dates: start: 2011
  11. ZOMETA [Suspect]
     Indication: METASTASES TO LIVER
     Dates: start: 2011
  12. ZOMETA [Suspect]
     Indication: METASTASES TO BONE
     Dates: start: 2011

REACTIONS (3)
  - Metastases to liver [None]
  - Metastases to bone [None]
  - Malignant neoplasm progression [None]
